FAERS Safety Report 10914216 (Version 1)
Quarter: 2015Q1

REPORT INFORMATION
  Report Type: Spontaneous
  Country: US (occurrence: US)
  Receive Date: 20150313
  Receipt Date: 20150313
  Transmission Date: 20150721
  Serious: Yes (Death, Hospitalization)
  Sender: FDA-Public Use
  Company Number: PHHY2015US028880

PATIENT

DRUGS (2)
  1. COCAINE [Suspect]
     Active Substance: COCAINE
     Indication: PRODUCT USED FOR UNKNOWN INDICATION
     Route: 065
  2. QUETIAPINE [Suspect]
     Active Substance: QUETIAPINE
     Indication: PRODUCT USED FOR UNKNOWN INDICATION
     Route: 065

REACTIONS (8)
  - Overdose [Fatal]
  - Blood pressure decreased [Unknown]
  - Bradycardia [Unknown]
  - Cardiac arrest [Unknown]
  - Seizure [Unknown]
  - Toxicity to various agents [Fatal]
  - Electrocardiogram QRS complex prolonged [Unknown]
  - Heart rate increased [Unknown]
